FAERS Safety Report 7873450 (Version 4)
Quarter: 2012Q4

REPORT INFORMATION
  Report Type: Spontaneous
  Country: JP (occurrence: None)
  Receive Date: 20110304
  Receipt Date: 20120529
  Transmission Date: 20130627
  Serious: Yes (Death)
  Sender: FDA-Public Use
  Company Number: JP-2011-10344

PATIENT
  Age: 74 Year
  Sex: Female
  Weight: 37 kg

DRUGS (9)
  1. SAMSCA [Suspect]
     Indication: OEDEMA PERIPHERAL
     Dosage: 15 MG MILLIGRAM(S), QD, ORAL
     Route: 048
     Dates: start: 20110118, end: 20110123
  2. LASIX [Suspect]
     Indication: OEDEMA PERIPHERAL
     Dosage: 40 MG MILLIGRAM(S), QD, ORAL
     Route: 048
     Dates: start: 20101214, end: 20110123
  3. ALDACTONE [Suspect]
     Indication: OEDEMA PERIPHERAL
     Dosage: 25 MG MILLIGRAM(S), QD, ORAL
     Route: 048
     Dates: start: 20101214, end: 20110124
  4. CETAPRIL (ALACEPRIL) TABLET [Concomitant]
  5. BAYASPIRIN (ACETYLSALICYLIC ACID) [Concomitant]
  6. THYRADIN S (LEVOTHYROXINE SODIUM) [Concomitant]
  7. WARFARIN (WARFARIN POTASSIUM) [Concomitant]
  8. GASTER [Concomitant]
  9. ANZIEF (ALLOPURINOL) [Concomitant]

REACTIONS (8)
  - Gastrointestinal haemorrhage [None]
  - Lung infection [None]
  - Hypoalbuminaemia [None]
  - Pleural effusion [None]
  - General physical health deterioration [None]
  - Activities of daily living impaired [None]
  - Melaena [None]
  - Cardiac failure [None]
